FAERS Safety Report 16890184 (Version 7)
Quarter: 2020Q3

REPORT INFORMATION
  Report Type: Report from Study
  Country: IL (occurrence: IL)
  Receive Date: 20191007
  Receipt Date: 20200728
  Transmission Date: 20201102
  Serious: Yes (Hospitalization)
  Sender: FDA-Public Use
  Company Number: IL-ROCHE-2420566

PATIENT
  Age: 68 Year
  Sex: Male
  Weight: 80 kg

DRUGS (23)
  1. CARBOPLATIN. [Suspect]
     Active Substance: CARBOPLATIN
     Indication: NON-SMALL CELL LUNG CANCER
     Dosage: DATE OF MOST RECENT DOSE OF CARBOPLATIN PRIOR TO AE/SAE ONSET: 25/JUL/2019?CARBOPLATIN INITIAL TARGE
     Route: 042
     Dates: start: 20190515
  2. NEXIUM [Concomitant]
     Active Substance: ESOMEPRAZOLE MAGNESIUM
     Indication: DYSPEPSIA
     Route: 001
     Dates: start: 20190716
  3. ACAMOL (ISRAEL) [Concomitant]
     Indication: PAIN
     Dates: start: 20190905, end: 20190911
  4. MICROPIRIN [Concomitant]
     Active Substance: ASPIRIN
     Indication: CEREBROVASCULAR ACCIDENT
     Route: 048
     Dates: start: 20190106
  5. ASPIRIN. [Concomitant]
     Active Substance: ASPIRIN
     Dates: start: 20190904, end: 20190905
  6. CEFAMEZIN [Concomitant]
     Active Substance: CEFAZOLIN
     Dates: start: 20190905, end: 20190905
  7. HEPARIN [Concomitant]
     Active Substance: HEPARIN SODIUM
     Dates: start: 20190906, end: 20190906
  8. OXYCODONE [Concomitant]
     Active Substance: OXYCODONE
     Indication: PAIN
     Dates: start: 20190906, end: 20190908
  9. SIRAN [Concomitant]
     Dates: start: 20190906, end: 20191010
  10. TRAMADOL. [Concomitant]
     Active Substance: TRAMADOL
     Dates: start: 20190920, end: 20190925
  11. NAB?PACLITAXEL [Suspect]
     Active Substance: PACLITAXEL
     Indication: NON-SMALL CELL LUNG CANCER
     Dosage: DATE OF MOST RECENT DOSE OF NAB?PACLITAXEL PRIOR TO AE/SAE ONSET: 31/JUL/2019?NAB?PACLITAXEL 100 MG/
     Route: 042
     Dates: start: 20190515
  12. LIPITOR [Concomitant]
     Active Substance: ATORVASTATIN CALCIUM
     Indication: HYPERLIPIDAEMIA
     Route: 048
     Dates: start: 20190106
  13. CLEXANE [Concomitant]
     Active Substance: ENOXAPARIN SODIUM
     Dates: start: 20190907, end: 20191010
  14. ALFUZOSIN [Concomitant]
     Active Substance: ALFUZOSIN
     Indication: NEPHROLITHIASIS
     Route: 048
     Dates: start: 20190312
  15. AROVENT [Concomitant]
     Active Substance: MONTELUKAST SODIUM
     Dates: start: 20190905, end: 20190908
  16. AVILAC [Concomitant]
     Indication: CONSTIPATION
     Dates: start: 20190922, end: 20190922
  17. NYSTATIN. [Concomitant]
     Active Substance: NYSTATIN
     Indication: STOMATITIS
     Dates: start: 20190725
  18. ATEZOLIZUMAB. [Suspect]
     Active Substance: ATEZOLIZUMAB
     Indication: NON-SMALL CELL LUNG CANCER
     Dosage: DATE OF MOST RECENT DOSE OF ATEZOLIZUMAB PRIOR TO SAE ONSET: 25/JUL/2019
     Route: 042
     Dates: start: 20190515
  19. AEROVENT (ISRAEL) [Concomitant]
     Indication: DYSPNOEA
     Dates: start: 20190703
  20. XATRAL [Concomitant]
     Active Substance: ALFUZOSIN
     Indication: URINARY RETENTION
     Dates: start: 20190716
  21. ACAMOL (ISRAEL) [Concomitant]
     Dates: start: 20190920, end: 20190925
  22. OPTALGIN [Concomitant]
     Active Substance: METAMIZOLE
     Indication: PAIN
     Dates: start: 20190905, end: 20191010
  23. TRAMADOL. [Concomitant]
     Active Substance: TRAMADOL
     Dates: start: 20190905, end: 20190906

REACTIONS (2)
  - Emphysema [Recovered/Resolved]
  - Pneumothorax [Recovered/Resolved]

NARRATIVE: CASE EVENT DATE: 20190920
